FAERS Safety Report 5268907-3 (Version None)
Quarter: 2007Q1

REPORT INFORMATION
  Report Type: 
  Country: None (occurrence: None)
  Receive Date: 20070313
  Receipt Date: 20070227
  Transmission Date: 20070707
  Serious: Yes (Death)
  Sender: FDA-Public Use
  Company Number: 2007030006

PATIENT
  Age: 77 Year
  Sex: Female

DRUGS (2)
  1. PENICILLAMINE [Suspect]
     Indication: HEPATO-LENTICULAR DEGENERATION
     Dosage: 900 MG DAILY
     Dates: start: 20051001, end: 20051101
  2. ZINC (ZINC) [Concomitant]

REACTIONS (5)
  - BEDRIDDEN [None]
  - CARDIO-RESPIRATORY ARREST [None]
  - DYSTONIA [None]
  - GENERAL PHYSICAL HEALTH DETERIORATION [None]
  - PARKINSONISM [None]
